FAERS Safety Report 9153928 (Version 2)
Quarter: 2013Q2

REPORT INFORMATION
  Report Type: Spontaneous
  Country: US (occurrence: US)
  Receive Date: 20130311
  Receipt Date: 20130412
  Transmission Date: 20140414
  Serious: Yes (Death, Other)
  Sender: FDA-Public Use
  Company Number: US-ASTELLAS-2013US002631

PATIENT
  Age: 64 Year
  Sex: Male

DRUGS (7)
  1. PROGRAF [Suspect]
     Indication: HEART TRANSPLANT
     Dosage: UNK
     Route: 065
     Dates: start: 200208, end: 200310
  2. PROGRAF [Suspect]
     Indication: RENAL TRANSPLANT
     Dosage: 2 MG, BID
     Route: 065
     Dates: start: 2005
  3. PROGRAF [Suspect]
     Dosage: 1.5 MG IN AM, 1 MG IN PM
     Route: 065
     Dates: start: 2007
  4. MYCOPHENOLATE MOFETIL [Concomitant]
     Indication: HEART TRANSPLANT
     Dosage: UNK
     Route: 065
     Dates: start: 200208
  5. MYCOPHENOLATE MOFETIL [Concomitant]
     Indication: RENAL TRANSPLANT
  6. PREDNISONE [Concomitant]
     Indication: HEART TRANSPLANT
     Dosage: UNK
     Route: 065
     Dates: start: 200208
  7. PREDNISONE [Concomitant]
     Indication: RENAL TRANSPLANT
     Dosage: 4 MG, UID/QD
     Route: 065

REACTIONS (2)
  - Lung squamous cell carcinoma recurrent [Fatal]
  - Squamous cell carcinoma of skin [Recovered/Resolved]
